FAERS Safety Report 7551861-9 (Version None)
Quarter: 2011Q2

REPORT INFORMATION
  Report Type: 
  Country: None (occurrence: None)
  Receive Date: 20110616
  Receipt Date: 20110602
  Transmission Date: 20111010
  Serious: Yes (Hospitalization, Other)
  Sender: FDA-Public Use
  Company Number: US-CELGENEUS-163-21880-11032754

PATIENT
  Sex: Male

DRUGS (8)
  1. VITAMIN D [Concomitant]
     Dosage: 1
     Route: 065
  2. REVLIMID [Suspect]
     Dosage: 10 MILLIGRAM
     Route: 048
     Dates: start: 20100601, end: 20110323
  3. COUMADIN [Concomitant]
     Indication: ANTICOAGULANT THERAPY
     Dosage: 5 MILLIGRAM
     Route: 065
  4. LOVASTATIN [Concomitant]
     Route: 065
  5. DEXAMETHASONE [Concomitant]
     Dosage: 4 MILLIGRAM
     Route: 065
  6. REVLIMID [Suspect]
     Indication: MULTIPLE MYELOMA
     Dosage: 15 MILLIGRAM
     Route: 048
     Dates: start: 20090202, end: 20090101
  7. REVLIMID [Suspect]
     Dosage: 10 MILLIGRAM
     Route: 048
     Dates: start: 20110509
  8. CARVEDILOL [Concomitant]
     Dosage: 6.25 MILLIGRAM
     Route: 065

REACTIONS (2)
  - PROSTATE CANCER STAGE 0 [None]
  - SEPTIC SHOCK [None]
